FAERS Safety Report 23107999 (Version 3)
Quarter: 2023Q4

REPORT INFORMATION
  Report Type: Spontaneous
  Country: CA (occurrence: CA)
  Receive Date: 20231026
  Receipt Date: 20231220
  Transmission Date: 20240109
  Serious: Yes (Other)
  Sender: FDA-Public Use
  Company Number: CA-SANDOZ-SDZ2023CA045603

PATIENT
  Sex: Female

DRUGS (5)
  1. ESTRADIOL [Suspect]
     Active Substance: ESTRADIOL
     Dosage: 50 MG
     Route: 062
     Dates: start: 20230927
  2. ESTRADIOL [Suspect]
     Active Substance: ESTRADIOL
     Dosage: 50 MG
     Route: 062
     Dates: start: 20230928
  3. ESTRADIOL [Suspect]
     Active Substance: ESTRADIOL
     Dosage: 50 MG
     Route: 062
     Dates: start: 20230930
  4. ESTRADIOL [Suspect]
     Active Substance: ESTRADIOL
     Dosage: 1 PATCH
     Route: 065
     Dates: start: 20231004
  5. ESTRADIOL [Suspect]
     Active Substance: ESTRADIOL
     Indication: Premature menopause
     Dosage: UNK
     Route: 065
     Dates: start: 20230927

REACTIONS (13)
  - Suicidal ideation [Recovered/Resolved]
  - Cardiac disorder [Unknown]
  - Mood swings [Recovered/Resolved]
  - Feeling abnormal [Unknown]
  - Anxiety [Unknown]
  - Brain fog [Recovered/Resolved]
  - Fall [Unknown]
  - Depressed mood [Unknown]
  - Blood sodium decreased [Unknown]
  - Irritability [Recovered/Resolved]
  - Headache [Recovered/Resolved]
  - Depression [Unknown]
  - Product adhesion issue [Unknown]

NARRATIVE: CASE EVENT DATE: 20231001
